FAERS Safety Report 15920935 (Version 24)
Quarter: 2021Q4

REPORT INFORMATION
  Report Type: Report from Study
  Country: CA (occurrence: CA)
  Receive Date: 20190205
  Receipt Date: 20211014
  Transmission Date: 20220303
  Serious: Yes (Life-Threatening, Hospitalization, Other)
  Sender: FDA-Public Use
  Company Number: PHHY2018CA125337

PATIENT
  Age: 65 Year
  Sex: Male
  Weight: 63 kg

DRUGS (27)
  1. XOLAIR [Suspect]
     Active Substance: OMALIZUMAB
     Indication: Asthma
     Dosage: 375 MG, BIW
     Route: 058
     Dates: start: 20181009
  2. XOLAIR [Suspect]
     Active Substance: OMALIZUMAB
     Dosage: 375 MG, BIW
     Route: 058
     Dates: start: 20181120
  3. XOLAIR [Suspect]
     Active Substance: OMALIZUMAB
     Dosage: 375 MG, BIW
     Route: 058
     Dates: start: 20181204
  4. XOLAIR [Suspect]
     Active Substance: OMALIZUMAB
     Dosage: 375 MG, BIW
     Route: 058
     Dates: start: 20181218
  5. XOLAIR [Suspect]
     Active Substance: OMALIZUMAB
     Dosage: 375 MG, BIW
     Route: 058
     Dates: start: 20190104
  6. XOLAIR [Suspect]
     Active Substance: OMALIZUMAB
     Dosage: 375 MG, BIW
     Route: 058
     Dates: start: 20190118
  7. XOLAIR [Suspect]
     Active Substance: OMALIZUMAB
     Dosage: 375 MG, BIW
     Route: 058
     Dates: start: 20190129
  8. XOLAIR [Suspect]
     Active Substance: OMALIZUMAB
     Dosage: 375 MG, BIW
     Route: 058
     Dates: start: 20190211
  9. XOLAIR [Suspect]
     Active Substance: OMALIZUMAB
     Dosage: 375 MG, BIW
     Route: 058
     Dates: start: 20190311, end: 201903
  10. XOLAIR [Suspect]
     Active Substance: OMALIZUMAB
     Dosage: 375 MG, BIW
     Route: 058
     Dates: start: 20190429
  11. XOLAIR [Suspect]
     Active Substance: OMALIZUMAB
     Dosage: 375 MG, BIW
     Route: 058
     Dates: start: 20190527
  12. XOLAIR [Suspect]
     Active Substance: OMALIZUMAB
     Dosage: 375 MG, BIW
     Route: 058
     Dates: start: 20190722
  13. XOLAIR [Suspect]
     Active Substance: OMALIZUMAB
     Dosage: 375 MG, BIW
     Route: 058
     Dates: start: 20191008
  14. XOLAIR [Suspect]
     Active Substance: OMALIZUMAB
     Dosage: 375 MG, BIW
     Route: 058
     Dates: start: 20191023
  15. XOLAIR [Suspect]
     Active Substance: OMALIZUMAB
     Dosage: 375 MG, BIW
     Route: 058
     Dates: start: 20191218
  16. XOLAIR [Suspect]
     Active Substance: OMALIZUMAB
     Dosage: 375 MG, BIW
     Route: 058
     Dates: start: 20200106
  17. XOLAIR [Suspect]
     Active Substance: OMALIZUMAB
     Dosage: 375 MG, BIW
     Route: 058
     Dates: start: 20200204
  18. XOLAIR [Suspect]
     Active Substance: OMALIZUMAB
     Dosage: 375 MG, BIW
     Route: 058
     Dates: start: 20201109
  19. XOLAIR [Suspect]
     Active Substance: OMALIZUMAB
     Dosage: 375 MG, BIW
     Route: 058
     Dates: end: 20200415
  20. AZITHROMYCIN ANHYDROUS [Suspect]
     Active Substance: AZITHROMYCIN ANHYDROUS
     Indication: Product used for unknown indication
     Dosage: 250 MG
     Route: 065
  21. PAXIL [Suspect]
     Active Substance: PAROXETINE HYDROCHLORIDE
     Indication: Anxiety
     Dosage: 1 DF, QD
     Route: 065
     Dates: start: 20190628
  22. PAXIL [Suspect]
     Active Substance: PAROXETINE HYDROCHLORIDE
     Indication: Depression
     Dosage: 10 MG
     Route: 065
     Dates: start: 20190711, end: 20190718
  23. PAXIL [Suspect]
     Active Substance: PAROXETINE HYDROCHLORIDE
     Indication: Dyspnoea
  24. ATORVASTATIN [Concomitant]
     Active Substance: ATORVASTATIN
     Indication: Product used for unknown indication
     Dosage: 1 DF, QD
     Route: 048
     Dates: start: 2015
  25. PAROXETINE HYDROCHLORIDE [Concomitant]
     Active Substance: PAROXETINE HYDROCHLORIDE
     Indication: Antidepressant therapy
     Dosage: 1 DF, QD
     Route: 048
     Dates: start: 201712
  26. TRAZODONE [Concomitant]
     Active Substance: TRAZODONE HYDROCHLORIDE
     Indication: Sleep disorder
     Dosage: 1 DF, QD
     Route: 048
     Dates: start: 2018
  27. ASPIRIN [Concomitant]
     Active Substance: ASPIRIN
     Indication: Prophylaxis
     Dosage: 1 DF, QD
     Route: 048
     Dates: start: 2015

REACTIONS (55)
  - Suicidal ideation [Unknown]
  - Bronchitis [Recovering/Resolving]
  - Abdominal pain [Unknown]
  - Tinnitus [Unknown]
  - Depression [Unknown]
  - Dyspnoea [Not Recovered/Not Resolved]
  - Mental disorder [Recovering/Resolving]
  - Intervertebral disc protrusion [Unknown]
  - Pain [Not Recovered/Not Resolved]
  - Anxiety [Not Recovered/Not Resolved]
  - Cyst [Unknown]
  - Back pain [Unknown]
  - Blood pressure systolic increased [Recovering/Resolving]
  - Blood cholesterol increased [Unknown]
  - Heart rate increased [Recovering/Resolving]
  - Rhinorrhoea [Not Recovered/Not Resolved]
  - Vision blurred [Recovering/Resolving]
  - Asthenia [Unknown]
  - Myopia [Unknown]
  - Sputum retention [Unknown]
  - Muscle spasms [Unknown]
  - Abscess oral [Unknown]
  - Dermatitis contact [Unknown]
  - Acne [Unknown]
  - Pruritus [Unknown]
  - Laziness [Unknown]
  - Osteoarthritis [Unknown]
  - Nervousness [Unknown]
  - Lacrimation increased [Unknown]
  - Fear [Unknown]
  - Malaise [Unknown]
  - Weight decreased [Unknown]
  - Tendonitis [Unknown]
  - Muscular weakness [Not Recovered/Not Resolved]
  - Stomatitis [Unknown]
  - Confusional state [Unknown]
  - Herpes zoster [Unknown]
  - Stress [Unknown]
  - Dry mouth [Unknown]
  - Sleep disorder [Unknown]
  - Hypoaesthesia [Unknown]
  - Burning sensation [Unknown]
  - Appetite disorder [Unknown]
  - Urticaria [Unknown]
  - Injection site urticaria [Unknown]
  - Headache [Not Recovered/Not Resolved]
  - Headache [Recovered/Resolved]
  - Dizziness [Recovering/Resolving]
  - Fatigue [Not Recovered/Not Resolved]
  - Nasopharyngitis [Unknown]
  - Diarrhoea [Unknown]
  - Asthma [Unknown]
  - Neck pain [Not Recovered/Not Resolved]
  - Tremor [Unknown]
  - Drug ineffective [Unknown]

NARRATIVE: CASE EVENT DATE: 20181009
